FAERS Safety Report 8076625-1 (Version None)
Quarter: 2012Q1

REPORT INFORMATION
  Report Type: 
  Country: None (occurrence: None)
  Receive Date: 20120127
  Receipt Date: 20120118
  Transmission Date: 20120608
  Serious: Yes (Hospitalization)
  Sender: FDA-Public Use
  Company Number: US-BAYER-2011-040435

PATIENT
  Sex: Female
  Weight: 54.422 kg

DRUGS (5)
  1. YAZ [Suspect]
     Dosage: UNK
     Dates: start: 20070101, end: 20100101
  2. AMITIZA [Concomitant]
  3. ALIGN [Concomitant]
  4. PHENTERMINE [Concomitant]
  5. LOESTRIN 1.5/30 [Concomitant]

REACTIONS (6)
  - PAIN [None]
  - CHOLELITHIASIS [None]
  - ANXIETY [None]
  - CHOLECYSTITIS CHRONIC [None]
  - GASTROINTESTINAL DISORDER [None]
  - ANHEDONIA [None]
